FAERS Safety Report 8086973-7 (Version None)
Quarter: 2012Q1

REPORT INFORMATION
  Report Type: 
  Country: None (occurrence: None)
  Receive Date: 20120128
  Receipt Date: 20110520
  Transmission Date: 20120608
  Serious: No
  Sender: FDA-Public Use
  Company Number: US-ABBOTT-11P-163-0727427-00

PATIENT
  Age: 51 Year
  Sex: Female

DRUGS (2)
  1. METOPROLOL TARTRATE [Concomitant]
     Indication: PRODUCT USED FOR UNKNOWN INDICATION
     Dosage: 50MG DAILY
  2. HUMIRA [Suspect]
     Indication: CROHN'S DISEASE
     Dates: start: 20110201, end: 20110429

REACTIONS (1)
  - SINUSITIS [None]
